FAERS Safety Report 10016369 (Version 1)
Quarter: 2014Q1

REPORT INFORMATION
  Report Type: Spontaneous
  Country: DE (occurrence: DE)
  Receive Date: 20140317
  Receipt Date: 20140317
  Transmission Date: 20141002
  Serious: Yes (Other)
  Sender: FDA-Public Use
  Company Number: PHHY2014DE031703

PATIENT
  Age: 83 Year
  Sex: Male

DRUGS (5)
  1. DIOVAN [Suspect]
     Dosage: 1 DF, QD
     Route: 048
     Dates: start: 2012
  2. DIOVAN [Suspect]
     Dosage: 1 DF, BID
     Route: 048
  3. XARELTO [Concomitant]
  4. SIMVASTATIN [Concomitant]
     Dosage: 40 MG, DAILY
  5. METOPROLOL [Concomitant]

REACTIONS (1)
  - Pulmonary embolism [Unknown]
